FAERS Safety Report 8182371-6 (Version None)
Quarter: 2012Q1

REPORT INFORMATION
  Report Type: 
  Country: None (occurrence: None)
  Receive Date: 20120303
  Receipt Date: 20120213
  Transmission Date: 20120608
  Serious: Yes (Other)
  Sender: FDA-Public Use
  Company Number: MY-RANBAXY-2012R3-53471

PATIENT
  Age: 50 Year
  Sex: Female

DRUGS (1)
  1. ATORVASTATIN [Suspect]
     Indication: HYPERCHOLESTEROLAEMIA
     Dosage: 20MG, DAILY
     Route: 048

REACTIONS (2)
  - MUSCULAR WEAKNESS [None]
  - MUSCLE RUPTURE [None]
